FAERS Safety Report 4951271-4 (Version None)
Quarter: 2006Q1

REPORT INFORMATION
  Report Type: 
  Country: None (occurrence: None)
  Receive Date: 20060323
  Receipt Date: 20060315
  Transmission Date: 20060701
  Serious: Yes (Hospitalization, Other)
  Sender: FDA-Public Use
  Company Number: FR-JNJFOC-20051102719

PATIENT
  Age: 70 Year
  Sex: Female

DRUGS (5)
  1. REMICADE [Suspect]
     Indication: RHEUMATOID ARTHRITIS
     Dosage: 3MG/KG
     Route: 042
  2. NOVATREX [Concomitant]
     Indication: RHEUMATOID ARTHRITIS
     Route: 048
  3. SPECIAFOLDINE [Concomitant]
     Indication: RHEUMATOID ARTHRITIS
     Route: 048
  4. FOSAMAX [Concomitant]
     Indication: OSTEOPOROSIS
     Route: 048
  5. FIXICAL [Concomitant]
     Indication: OSTEOPOROSIS
     Dosage: DOSE = TABLETS
     Route: 048

REACTIONS (2)
  - INFECTIVE TENOSYNOVITIS [None]
  - MYCOBACTERIAL INFECTION [None]
